FAERS Safety Report 5813768-4 (Version None)
Quarter: 2008Q3

REPORT INFORMATION
  Report Type: 
  Country: None (occurrence: None)
  Receive Date: 20080717
  Receipt Date: 20080711
  Transmission Date: 20090109
  Serious: Yes (Other)
  Sender: FDA-Public Use
  Company Number: PHHY2008FR10921

PATIENT
  Sex: Female
  Weight: 50 kg

DRUGS (1)
  1. TEGRETOL 200 LC [Suspect]
     Indication: PARTIAL SEIZURES
     Dosage: 200 MG DAILY
     Dates: start: 19930101

REACTIONS (2)
  - ABORTION INDUCED [None]
  - DRUG EXPOSURE DURING PREGNANCY [None]
